FAERS Safety Report 7107303 (Version 8)
Quarter: 2012Q4

REPORT INFORMATION
  Report Type: 
  Country: CA (occurrence: CA)
  Receive Date: 20090908
  Receipt Date: 20121109
  Transmission Date: 20130627
  Serious: Yes (Other)
  Sender: FDA-Public Use
  Company Number: PHHY2009CA16313

PATIENT
  Sex: Female

DRUGS (2)
  1. SANDOSTATIN LAR [Suspect]
     Indication: OVARIAN CANCER
     Dosage: 30 mg, every 2 weeks
     Route: 030
     Dates: start: 20081230
  2. SUTENT [Concomitant]

REACTIONS (10)
  - Blood pressure increased [Unknown]
  - Hepatic lesion [Unknown]
  - Malignant neoplasm progression [Not Recovered/Not Resolved]
  - Nervousness [Unknown]
  - Generalised oedema [Unknown]
  - Injection site mass [Recovered/Resolved]
  - Anxiety [Unknown]
  - Injection site induration [Unknown]
  - Injection site pain [Recovered/Resolved]
  - Abdominal pain upper [Unknown]
